FAERS Safety Report 9656471 (Version 1)
Quarter: 2013Q4

REPORT INFORMATION
  Report Type: Spontaneous
  Country: DE (occurrence: None)
  Receive Date: 20131028
  Receipt Date: 20131028
  Transmission Date: 20140711
  Serious: Yes (Hospitalization)
  Sender: FDA-Public Use
  Company Number: 1310-1339

PATIENT
  Age: 69 Year
  Sex: Female

DRUGS (5)
  1. EYLEA (AFLIBERCEPT) (INJECTION) (AFLIBERCEPT) [Suspect]
     Indication: AGE-RELATED MACULAR DEGENERATION
     Route: 031
  2. CLOPIDOGREL (CLOPIDOGREL) [Concomitant]
  3. SIMVASTATIN (SIMVASTATIN) [Concomitant]
  4. BENDROFLUMETHIAZIDE (BENDROFLUMETHIAZIDE) [Concomitant]
  5. ADALAT (NIFEDIPINE) [Concomitant]

REACTIONS (2)
  - Transient ischaemic attack [None]
  - Paraesthesia [None]
